FAERS Safety Report 21194455 (Version 4)
Quarter: 2023Q2

REPORT INFORMATION
  Report Type: Other
  Country: US (occurrence: None)
  Receive Date: 20220810
  Receipt Date: 20230515
  Transmission Date: 20230722
  Serious: Yes (Other)
  Sender: FDA-Public Use
  Company Number: US-ROCHE-2966898

PATIENT
  Age: 88 Year
  Sex: Female
  Weight: 107 kg

DRUGS (14)
  1. ACTEMRA [Suspect]
     Active Substance: TOCILIZUMAB
     Indication: Giant cell arteritis
     Dosage: INJECT 1 PEN(162MG) SUBCUTANEOUSLY EVERY WEEK
     Route: 058
     Dates: start: 2021
  2. ACTEMRA [Suspect]
     Active Substance: TOCILIZUMAB
  3. ACTEMRA [Suspect]
     Active Substance: TOCILIZUMAB
     Dosage: INJECT ONE PEN UNDER THE SKIN ONCE EVERY OTHER WEEK.
     Route: 058
  4. ACTEMRA [Suspect]
     Active Substance: TOCILIZUMAB
  5. AMLODIPINE [Concomitant]
     Active Substance: AMLODIPINE BESYLATE
  6. ASPIRIN [Concomitant]
     Active Substance: ASPIRIN
  7. CLONIDINE [Concomitant]
     Active Substance: CLONIDINE
  8. COLACE [Concomitant]
     Active Substance: DOCUSATE SODIUM
  9. FIBER [Concomitant]
  10. IRON [Concomitant]
     Active Substance: IRON
  11. HYDROCHLOROTHIAZIDE [Concomitant]
     Active Substance: HYDROCHLOROTHIAZIDE
  12. LOVASTATIN [Concomitant]
     Active Substance: LOVASTATIN
  13. TRAZODONE [Concomitant]
     Active Substance: TRAZODONE HYDROCHLORIDE
  14. TYLENOL [Concomitant]
     Active Substance: ACETAMINOPHEN

REACTIONS (1)
  - Terminal state [Unknown]
